FAERS Safety Report 17938454 (Version 1)
Quarter: 2020Q2

REPORT INFORMATION
  Report Type: Spontaneous
  Country: US (occurrence: US)
  Receive Date: 20200624
  Receipt Date: 20200624
  Transmission Date: 20200714
  Serious: No
  Sender: FDA-Public Use
  Company Number: US-PFIZER INC-2020241951

PATIENT
  Age: 43 Year
  Sex: Male

DRUGS (14)
  1. LIPITOR [Suspect]
     Active Substance: ATORVASTATIN CALCIUM
     Dosage: UNK
  2. COZAAR [Suspect]
     Active Substance: LOSARTAN POTASSIUM
     Dosage: UNK
  3. LOPRESSOR [Suspect]
     Active Substance: METOPROLOL TARTRATE
     Dosage: UNK
  4. NORVASC [Suspect]
     Active Substance: AMLODIPINE BESYLATE
     Dosage: UNK
  5. NAPROXEN. [Suspect]
     Active Substance: NAPROXEN
     Dosage: UNK
  6. ASPIRIN [ACETYLSALICYLIC ACID] [Suspect]
     Active Substance: ASPIRIN
     Dosage: UNK
  7. FLEXERIL [CEFIXIME] [Suspect]
     Active Substance: CEFIXIME
     Dosage: UNK
  8. DECADRON [Suspect]
     Active Substance: DEXAMETHASONE
     Dosage: UNK
  9. GLUCOPHAGE [Suspect]
     Active Substance: METFORMIN HYDROCHLORIDE
     Dosage: UNK
  10. TRICOR [ADENOSINE] [Suspect]
     Active Substance: ADENOSINE
     Dosage: UNK
  11. LYRICA [Suspect]
     Active Substance: PREGABALIN
     Dosage: UNK
  12. MOBIC [Suspect]
     Active Substance: MELOXICAM
     Dosage: UNK
  13. ZOLOFT [Suspect]
     Active Substance: SERTRALINE HYDROCHLORIDE
     Dosage: UNK
  14. LIORESAL [Suspect]
     Active Substance: BACLOFEN
     Dosage: UNK

REACTIONS (4)
  - Nausea [Unknown]
  - Somnolence [Unknown]
  - Amnesia [Unknown]
  - Visual impairment [Unknown]
